FAERS Safety Report 13127592 (Version 5)
Quarter: 2017Q1

REPORT INFORMATION
  Report Type: Spontaneous
  Country: US (occurrence: US)
  Receive Date: 20170118
  Receipt Date: 20170221
  Transmission Date: 20170428
  Serious: Yes (Hospitalization, Other)
  Sender: FDA-Public Use
  Company Number: US-SAOL THERAPEUTICS-2017SAO00049

PATIENT
  Age: 69 Year
  Sex: Female
  Weight: 81.63 kg

DRUGS (10)
  1. DILAUDID [Concomitant]
     Active Substance: HYDROMORPHONE HYDROCHLORIDE
     Dosage: 4 MG, 1X/DAY
     Dates: start: 20160318
  2. CLONIDINE. [Suspect]
     Active Substance: CLONIDINE
     Dosage: 3.07 ?G, \DAY
     Dates: start: 20160106
  3. CELEBREX [Concomitant]
     Active Substance: CELECOXIB
     Dosage: 200 MG, 1X/DAY
     Dates: start: 20151007
  4. COMPOUNDED BACLOFEN [Suspect]
     Active Substance: BACLOFEN
     Dosage: 0.61 ?G, \DAY
     Dates: start: 20160106
  5. CLONIDINE. [Suspect]
     Active Substance: CLONIDINE
     Dosage: 130 ?G, \DAY
     Route: 037
     Dates: start: 20160106, end: 20160106
  6. COMPOUNDED BACLOFEN [Suspect]
     Active Substance: BACLOFEN
     Indication: POST LAMINECTOMY SYNDROME
     Dosage: 26 ?G, \DAY
     Route: 037
     Dates: start: 20160106, end: 20160106
  7. MORPHINE [Suspect]
     Active Substance: MORPHINE
     Dosage: 0.307 MG, \DAY
     Dates: start: 20160106
  8. MORPHINE [Suspect]
     Active Substance: MORPHINE
     Dosage: 13 MG, \DAY
     Route: 037
     Dates: start: 20160106, end: 20160106
  9. COMPOUNDED BACLOFEN [Suspect]
     Active Substance: BACLOFEN
     Dosage: 12.984 ?G, \DAY
     Dates: start: 20161107
  10. DILAUDID [Concomitant]
     Active Substance: HYDROMORPHONE HYDROCHLORIDE
     Dosage: 2 MG, 1X/DAY
     Dates: start: 20160318

REACTIONS (15)
  - Drug ineffective for unapproved indication [Recovered/Resolved]
  - Off label use [Unknown]
  - Lymphoedema [Unknown]
  - Insomnia [Unknown]
  - Drug withdrawal syndrome [Recovered/Resolved]
  - Scar [Unknown]
  - Intervertebral disc degeneration [Unknown]
  - Spinal osteoarthritis [Unknown]
  - Device failure [Unknown]
  - Generalised oedema [Unknown]
  - Cellulitis [Recovered/Resolved]
  - Sacroiliitis [Unknown]
  - Implant site haematoma [Recovering/Resolving]
  - Decreased appetite [Unknown]
  - Lung cancer metastatic [Unknown]

NARRATIVE: CASE EVENT DATE: 2016
